FAERS Safety Report 20449534 (Version 1)
Quarter: 2022Q1

REPORT INFORMATION
  Report Type: Spontaneous
  Country: US (occurrence: US)
  Receive Date: 20220209
  Receipt Date: 20220209
  Transmission Date: 20220424
  Serious: No
  Sender: FDA-Public Use
  Company Number: US-ORGANON-O2201USA002152

PATIENT
  Age: 21 Year
  Sex: Male

DRUGS (5)
  1. COZAAR [Suspect]
     Active Substance: LOSARTAN POTASSIUM
     Indication: Supraventricular tachycardia
     Dosage: 25 MILLIGRAM, QD
     Route: 048
  2. SOLU-MEDROL [Concomitant]
     Active Substance: METHYLPREDNISOLONE SODIUM SUCCINATE
     Indication: Supraventricular tachycardia
     Dosage: 1000 MILLIGRAM ONCE DAILY (QD) FOR 3 DAYS
  3. COLCHICINE [Concomitant]
     Active Substance: COLCHICINE
     Indication: Supraventricular tachycardia
     Dosage: 0.6 MILLIGRAM, BID
  4. METOPROLOL SUCCINATE [Concomitant]
     Active Substance: METOPROLOL SUCCINATE
     Indication: Supraventricular tachycardia
     Dosage: 25 MILLIGRAM, QD
  5. TOZINAMERAN [Concomitant]
     Active Substance: TOZINAMERAN
     Indication: COVID-19
     Dosage: UNK

REACTIONS (1)
  - Product use issue [Unknown]
